FAERS Safety Report 6784741-7 (Version None)
Quarter: 2010Q2

REPORT INFORMATION
  Report Type: 
  Country: None (occurrence: None)
  Receive Date: 20100622
  Receipt Date: 20100608
  Transmission Date: 20101027
  Serious: Yes (Other)
  Sender: FDA-Public Use
  Company Number: NL-MYLANLABS-2010S1010136

PATIENT
  Age: 63 Year
  Sex: Female

DRUGS (5)
  1. SIMVASTATIN [Suspect]
     Indication: MYOCARDIAL INFARCTION
     Dates: start: 20090519
  2. AMLODIPINE [Suspect]
     Indication: MYOCARDIAL INFARCTION
     Dates: start: 20090519
  3. PANTOPRAZOLE [Suspect]
     Indication: DYSPEPSIA
     Dates: start: 20090708
  4. PLAVIX [Suspect]
     Indication: MYOCARDIAL INFARCTION
     Dates: start: 20090519
  5. METOPROLOL TARTRATE [Suspect]
     Indication: MYOCARDIAL INFARCTION
     Dates: start: 20090519

REACTIONS (1)
  - DYSPHAGIA [None]
